FAERS Safety Report 24853933 (Version 5)
Quarter: 2025Q4

REPORT INFORMATION
  Report Type: Report from Study
  Country: EU (occurrence: EU)
  Receive Date: 20250117
  Receipt Date: 20251125
  Transmission Date: 20260117
  Serious: Yes (Hospitalization, Other)
  Sender: AMGEN
  Company Number: EU-AMGEN-IRLSL2023022684

PATIENT
  Age: 71 Year
  Sex: Female

DRUGS (36)
  1. KYPROLIS [Suspect]
     Active Substance: CARFILZOMIB
     Indication: Plasma cell myeloma
     Dosage: 44 MILLIGRAM, AS PER PRESCRIPTION
     Route: 040
     Dates: start: 20230120
  2. KYPROLIS [Suspect]
     Active Substance: CARFILZOMIB
     Dosage: 44 MILLIGRAM, AS PER PRESCRIPTION
     Route: 040
     Dates: start: 20230203
  3. KYPROLIS [Suspect]
     Active Substance: CARFILZOMIB
     Dosage: 44 MILLIGRAM, AS PER PRESCRIPTION
     Route: 040
     Dates: start: 20230217
  4. KYPROLIS [Suspect]
     Active Substance: CARFILZOMIB
     Dosage: 44 MILLIGRAM, AS PER PRESCRIPTION
     Route: 040
     Dates: start: 20230303
  5. KYPROLIS [Suspect]
     Active Substance: CARFILZOMIB
     Dosage: 44 MILLIGRAM, AS PER PRESCRIPTION
     Route: 040
     Dates: start: 20230331
  6. KYPROLIS [Suspect]
     Active Substance: CARFILZOMIB
     Dosage: 44 MILLIGRAM, AS PER PRESCRIPTION
     Route: 042
     Dates: start: 20230407
  7. KYPROLIS [Suspect]
     Active Substance: CARFILZOMIB
     Dosage: 44 MILLIGRAM, AS PER PRESCRIPTION
     Route: 040
     Dates: start: 20230414
  8. KYPROLIS [Suspect]
     Active Substance: CARFILZOMIB
     Dosage: 44 MILLIGRAM, AS PER PRESCRIPTION
     Route: 040
     Dates: start: 20230512
  9. KYPROLIS [Suspect]
     Active Substance: CARFILZOMIB
     Dosage: 44 MILLIGRAM, AS PER PRESCRIPTION
     Route: 042
     Dates: start: 20230519
  10. KYPROLIS [Suspect]
     Active Substance: CARFILZOMIB
     Dosage: 44 MILLIGRAM, AS PER PRESCRIPTION
     Route: 042
     Dates: start: 20230526
  11. KYPROLIS [Suspect]
     Active Substance: CARFILZOMIB
     Dosage: 44 MILLIGRAM, AS PER PRESCRIPTION
     Route: 042
     Dates: start: 20230609
  12. KYPROLIS [Suspect]
     Active Substance: CARFILZOMIB
     Dosage: 44 MILLIGRAM, AS PER PRESCRIPTION
     Route: 042
     Dates: start: 20230623
  13. KYPROLIS [Suspect]
     Active Substance: CARFILZOMIB
     Dosage: 44 MILLIGRAM, AS PER PRESCRIPTION
     Route: 042
     Dates: start: 20230707
  14. KYPROLIS [Suspect]
     Active Substance: CARFILZOMIB
     Dosage: 44 MILLIGRAM (AS PER PRESCRIPTION)
     Route: 042
     Dates: start: 20230721
  15. KYPROLIS [Suspect]
     Active Substance: CARFILZOMIB
     Dosage: 44 MILLIGRAM, AS PER PRESCRIPTION
     Route: 042
     Dates: start: 20230915
  16. KYPROLIS [Suspect]
     Active Substance: CARFILZOMIB
     Dosage: 44 MILLIGRAM, AS PER PRESCRIPTION
     Route: 042
     Dates: start: 20240301
  17. KYPROLIS [Suspect]
     Active Substance: CARFILZOMIB
     Dosage: 44 MILLIGRAM, AS PER PRESCRIPTION
     Route: 042
     Dates: start: 20240329
  18. KYPROLIS [Suspect]
     Active Substance: CARFILZOMIB
     Dosage: 44 MILLIGRAM, AS PER PRESCRIPTION
     Route: 042
     Dates: start: 20240412
  19. KYPROLIS [Suspect]
     Active Substance: CARFILZOMIB
     Dosage: 44 MILLIGRAM, AS PER PRESCRIPTION
     Route: 042
     Dates: start: 20240503
  20. KYPROLIS [Suspect]
     Active Substance: CARFILZOMIB
     Dosage: 44 MILLIGRAM, AS PER PRESCRIPTION
     Route: 042
     Dates: start: 20240517
  21. KYPROLIS [Suspect]
     Active Substance: CARFILZOMIB
     Dosage: 44 MILLIGRAM, AS PER PRESCRIPTION
     Route: 042
     Dates: start: 20240617
  22. KYPROLIS [Suspect]
     Active Substance: CARFILZOMIB
     Dosage: 44 MILLIGRAM, AS PER PRESCRIPTION
     Route: 042
     Dates: start: 20241115
  23. KYPROLIS [Suspect]
     Active Substance: CARFILZOMIB
     Dosage: 44 MILLIGRAM, AS PER PRESCRIPTION
     Route: 042
     Dates: start: 20241129
  24. KYPROLIS [Suspect]
     Active Substance: CARFILZOMIB
     Dosage: 44 MILLIGRAM (AS PER PRESCRIPTION)
     Route: 040
     Dates: start: 20250110
  25. KYPROLIS [Suspect]
     Active Substance: CARFILZOMIB
     Dosage: 44 MILLIGRAM (AS PER PRESCRIPTION)
     Route: 040
     Dates: start: 20250613
  26. KYPROLIS [Suspect]
     Active Substance: CARFILZOMIB
     Dosage: 44 MILLIGRAM (AS PER PRESCRIPTION)
     Route: 040
     Dates: start: 20250627
  27. KYPROLIS [Suspect]
     Active Substance: CARFILZOMIB
     Dosage: 44 MILLIGRAM (AS PER PRESCRIPTION)
     Route: 040
     Dates: start: 20250711
  28. KYPROLIS [Suspect]
     Active Substance: CARFILZOMIB
     Dosage: 44 MILLIGRAM (AS PER PRESCRIPTION)
     Route: 040
     Dates: start: 20251031
  29. ASPIRIN [Concomitant]
     Active Substance: ASPIRIN
     Indication: Product used for unknown indication
     Dosage: 75 MILLIGRAM, QD
     Route: 050
  30. LINAGLIPTIN [Concomitant]
     Active Substance: LINAGLIPTIN
     Indication: Product used for unknown indication
     Dosage: 5 MILLIGRAM, QD
     Route: 050
  31. VALTREX [Concomitant]
     Active Substance: VALACYCLOVIR HYDROCHLORIDE
     Indication: Product used for unknown indication
     Dosage: 500 MILLIGRAM, QD
     Route: 050
  32. SULFAMETHOXAZOLE\TRIMETHOPRIM [Concomitant]
     Active Substance: SULFAMETHOXAZOLE\TRIMETHOPRIM
     Indication: Product used for unknown indication
     Dosage: 160 MILLIGRAM, 3 TIMES/WK
     Route: 050
  33. MIRABEGRON [Concomitant]
     Active Substance: MIRABEGRON
     Indication: Product used for unknown indication
     Dosage: 50 MILLIGRAM, QD
     Route: 050
  34. AMLODIPINE [Concomitant]
     Active Substance: AMLODIPINE BESYLATE
     Indication: Hypertension
     Dosage: 5 MILLIGRAM, QD
     Route: 050
     Dates: start: 20230424
  35. METOCLOPRAMIDE [Concomitant]
     Active Substance: METOCLOPRAMIDE
     Dosage: 10 MILLIGRAM, Q.D.S
     Route: 050
  36. CYCLIZINE [Concomitant]
     Active Substance: CYCLIZINE
     Indication: Vomiting
     Dosage: 50 MILLIGRAM, TID (T.D.S)
     Route: 050

REACTIONS (11)
  - Areflexia [Recovered/Resolved]
  - Kidney infection [Unknown]
  - Lower respiratory tract infection [Recovering/Resolving]
  - Neuropathy peripheral [Not Recovered/Not Resolved]
  - Fall [Not Recovered/Not Resolved]
  - Nausea [Recovered/Resolved]
  - Hypertension [Unknown]
  - Vomiting [Not Recovered/Not Resolved]
  - Muscle spasms [Not Recovered/Not Resolved]
  - Back pain [Not Recovered/Not Resolved]
  - Therapy interrupted [Unknown]

NARRATIVE: CASE EVENT DATE: 20230101
